FAERS Safety Report 4305985-X (Version None)
Quarter: 2004Q1

REPORT INFORMATION
  Report Type: 
  Country: None (occurrence: None)
  Receive Date: 20040225
  Receipt Date: 20040213
  Transmission Date: 20041129
  Serious: Yes (Hospitalization)
  Sender: FDA-Public Use
  Company Number: 2004199084DE

PATIENT
  Age: 80 Year
  Sex: Female

DRUGS (3)
  1. BEXTRA [Suspect]
     Dosage: ORAL
     Route: 048
     Dates: start: 20040205
  2. INSULIN [Concomitant]
  3. CARDIAC MEDICATION [Concomitant]

REACTIONS (1)
  - SKIN REACTION [None]
